FAERS Safety Report 5154346-2 (Version None)
Quarter: 2006Q4

REPORT INFORMATION
  Report Type: 
  Country: None (occurrence: None)
  Receive Date: 20061114
  Receipt Date: 20061101
  Transmission Date: 20070319
  Serious: Yes (Other)
  Sender: FDA-Public Use
  Company Number: 2006135471

PATIENT
  Sex: Female

DRUGS (1)
  1. BEXTRA (VALCEDOXIB) [Suspect]
     Dosage: 10 MG, ORAL
     Route: 048
     Dates: start: 20041001

REACTIONS (1)
  - HYPERSENSITIVITY [None]
